FAERS Safety Report 8983684 (Version 1)
Quarter: 2012Q4

REPORT INFORMATION
  Report Type: 
  Country: GB (occurrence: GB)
  Receive Date: 20121224
  Receipt Date: 20121224
  Transmission Date: 20130627
  Serious: Yes (Disabling)
  Sender: FDA-Public Use
  Company Number: GB-ABBOTT-12P-167-1024687-00

PATIENT
  Age: 36 Year
  Sex: Female

DRUGS (3)
  1. DEPAKOTE [Suspect]
     Indication: PRODUCT USED FOR UNKNOWN INDICATION
  2. LITHIUM CARBONATE [Suspect]
     Indication: PRODUCT USED FOR UNKNOWN INDICATION
     Dates: start: 20121031
  3. LITHIUM CARBONATE [Suspect]
     Route: 065
     Dates: start: 20121018

REACTIONS (2)
  - Corneal reflex decreased [Not Recovered/Not Resolved]
  - Eye movement disorder [Unknown]
